FAERS Safety Report 7645260-9 (Version None)
Quarter: 2011Q3

REPORT INFORMATION
  Report Type: 
  Country: None (occurrence: None)
  Receive Date: 20110729
  Receipt Date: 20110629
  Transmission Date: 20111222
  Serious: No
  Sender: FDA-Public Use
  Company Number: US-BAYER-2011-058413

PATIENT
  Sex: Female
  Weight: 59 kg

DRUGS (7)
  1. CHOLESTEROL- AND TRIGLYCERIDE REDUCERS [Concomitant]
     Indication: BLOOD CHOLESTEROL INCREASED
  2. CITALOPRAM HYDROBROMIDE [Concomitant]
  3. ANTIHYPERTENSIVES [Concomitant]
     Indication: HYPERTENSION
  4. ASPIRIN [Concomitant]
  5. ALEVE (CAPLET) [Suspect]
     Indication: BACK PAIN
     Dosage: 3 DF, BID
  6. ALEVE (CAPLET) [Suspect]
     Dosage: 2 DF, BID
  7. MULTI-VITAMIN [Concomitant]

REACTIONS (2)
  - PAIN [None]
  - NO ADVERSE EVENT [None]
